FAERS Safety Report 26061469 (Version 1)
Quarter: 2025Q4

REPORT INFORMATION
  Report Type: Spontaneous
  Country: US (occurrence: US)
  Receive Date: 20251118
  Receipt Date: 20251118
  Transmission Date: 20260119
  Serious: No
  Sender: NOVO NORDISK
  Company Number: US-NOVOPROD-1465869

PATIENT
  Age: 76 Year
  Sex: Female

DRUGS (2)
  1. INSULIN ASPART [Suspect]
     Active Substance: INSULIN ASPART
     Indication: Type 2 diabetes mellitus
     Dosage: SLIDING SCALE
     Dates: start: 202503
  2. BASAGLAR [Concomitant]
     Active Substance: INSULIN GLARGINE
     Indication: Product used for unknown indication
     Dosage: UNK

REACTIONS (7)
  - Dental implantation [Recovered/Resolved]
  - Blood glucose increased [Unknown]
  - Hyperglycaemia [Unknown]
  - Blood glucose decreased [Unknown]
  - Wrong technique in product usage process [Unknown]
  - Product use issue [Unknown]
  - Device failure [Unknown]

NARRATIVE: CASE EVENT DATE: 20250301
